FAERS Safety Report 5012585-5 (Version None)
Quarter: 2006Q2

REPORT INFORMATION
  Report Type: 
  Country: None (occurrence: None)
  Receive Date: 20060414
  Receipt Date: 20060108
  Transmission Date: 20061013
  Serious: No
  Sender: FDA-Public Use
  Company Number: 2006SP000177

PATIENT
  Age: 44 Year
  Sex: Male
  Weight: 135.6255 kg

DRUGS (14)
  1. LUNESTA [Suspect]
     Indication: DEPRESSION
     Dosage: 3 MG;TIW;ORAL
     Route: 048
     Dates: start: 20060106
  2. LUNESTA [Suspect]
     Indication: INITIAL INSOMNIA
     Dosage: 3 MG;TIW;ORAL
     Route: 048
     Dates: start: 20060106
  3. SYNTHROID [Concomitant]
  4. CYMBALTA [Concomitant]
  5. WELLBUTRIN SR [Concomitant]
  6. ACETYLSALICYLIC ACID SRT [Concomitant]
  7. MULTIVITAMINS WITH MINERALS [Concomitant]
  8. TYLENOL (CAPLET) [Concomitant]
  9. LODINE [Concomitant]
  10. PEPCID [Concomitant]
  11. BENADRYL [Concomitant]
  12. DESYREL [Concomitant]
  13. BENTYL [Concomitant]
  14. LOMOTIL [Concomitant]

REACTIONS (1)
  - INITIAL INSOMNIA [None]
